FAERS Safety Report 9817050 (Version 1)
Quarter: 2014Q1

REPORT INFORMATION
  Report Type: Spontaneous
  Country: US (occurrence: US)
  Receive Date: 20140114
  Receipt Date: 20140114
  Transmission Date: 20141002
  Serious: No
  Sender: FDA-Public Use
  Company Number: US-BIOGENIDEC-2014BI000304

PATIENT
  Age: 49 Year
  Sex: Male
  Weight: 83 kg

DRUGS (7)
  1. TECFIDERA [Suspect]
     Indication: PRODUCT USED FOR UNKNOWN INDICATION
     Route: 048
  2. TECFIDERA [Suspect]
     Indication: PRODUCT USED FOR UNKNOWN INDICATION
     Route: 048
  3. CYMBALTA [Concomitant]
  4. METFORMIN [Concomitant]
  5. AMBIEN [Concomitant]
  6. VITAMIN D [Concomitant]
  7. CALCIUM D [Concomitant]

REACTIONS (1)
  - Headache [Unknown]
